FAERS Safety Report 10348292 (Version 5)
Quarter: 2015Q1

REPORT INFORMATION
  Report Type: Spontaneous
  Country: GB (occurrence: GB)
  Receive Date: 20140729
  Receipt Date: 20150218
  Transmission Date: 20150720
  Serious: Yes (Other)
  Sender: FDA-Public Use
  Company Number: GB-TEVA-495696ISR

PATIENT
  Age: 32 Year
  Sex: Female
  Weight: 79.2 kg

DRUGS (4)
  1. AZATHIOPRINE. [Suspect]
     Active Substance: AZATHIOPRINE
     Route: 065
  2. PRIVIGEN [Suspect]
     Active Substance: HUMAN IMMUNOGLOBULIN G
     Indication: MYASTHENIA GRAVIS
     Route: 042
  3. PREDNISOLONE. [Suspect]
     Active Substance: PREDNISOLONE
     Indication: MYASTHENIA GRAVIS
     Dosage: 17.5 MILLIGRAM DAILY;
     Route: 048
  4. PYRIDOSTIGMINE [Suspect]
     Active Substance: PYRIDOSTIGMINE
     Indication: MYASTHENIA GRAVIS

REACTIONS (5)
  - Meningitis aseptic [Unknown]
  - Photophobia [Unknown]
  - Headache [Unknown]
  - Nuchal rigidity [Unknown]
  - Condition aggravated [Unknown]
